APPROVED DRUG PRODUCT: DEXMETHYLPHENIDATE HYDROCHLORIDE
Active Ingredient: DEXMETHYLPHENIDATE HYDROCHLORIDE
Strength: 5MG
Dosage Form/Route: TABLET;ORAL
Application: A209211 | Product #001 | TE Code: AB
Applicant: CEDIPROF INC
Approved: Sep 19, 2018 | RLD: No | RS: No | Type: RX